FAERS Safety Report 8309742-9 (Version None)
Quarter: 2012Q2

REPORT INFORMATION
  Report Type: 
  Country: None (occurrence: None)
  Receive Date: 20120425
  Receipt Date: 20120413
  Transmission Date: 20120825
  Serious: Yes (Hospitalization)
  Sender: FDA-Public Use
  Company Number: PHHY2012GB032921

PATIENT
  Age: 59 Year
  Sex: Male

DRUGS (2)
  1. HYDROCORTISONE [Concomitant]
     Dosage: 100 MG, QID
     Route: 042
  2. CYCLOSPORINE [Suspect]
     Indication: CYTOMEGALOVIRUS COLITIS
     Dosage: 200 MG, BID
     Route: 048

REACTIONS (4)
  - LOWER RESPIRATORY TRACT INFECTION [None]
  - URINARY RETENTION [None]
  - DRUG INEFFECTIVE [None]
  - NOSOCOMIAL INFECTION [None]
